FAERS Safety Report 14756822 (Version 1)
Quarter: 2018Q2

REPORT INFORMATION
  Report Type: Spontaneous
  Country: ZA (occurrence: ZA)
  Receive Date: 20180413
  Receipt Date: 20180413
  Transmission Date: 20180711
  Serious: Yes (Other)
  Sender: FDA-Public Use
  Company Number: IND-ZA-009507513-1804ZAF003701

PATIENT
  Sex: Female

DRUGS (2)
  1. ARCOXIA [Suspect]
     Active Substance: ETORICOXIB
     Indication: FIBROMYALGIA
     Route: 048
  2. ARCOXIA [Suspect]
     Active Substance: ETORICOXIB
     Indication: BACK PAIN

REACTIONS (2)
  - Product use in unapproved indication [Unknown]
  - Cerebral haemorrhage [Recovered/Resolved]
